FAERS Safety Report 7349573-X (Version None)
Quarter: 2011Q1

REPORT INFORMATION
  Report Type: 
  Country: None (occurrence: None)
  Receive Date: 20110309
  Receipt Date: 20110309
  Transmission Date: 20110831
  Serious: Yes (Hospitalization, Disabling)
  Sender: FDA-Public Use
  Company Number: None

PATIENT
  Sex: Female
  Weight: 58.9676 kg

DRUGS (1)
  1. ZOLPIDEM TARTRATE [Suspect]
     Indication: INSOMNIA
     Dosage: 10MG 1 X AT BEDTIME ORAL
     Route: 048
     Dates: start: 20101203, end: 20101209

REACTIONS (3)
  - TOOTH EROSION [None]
  - LOSS OF CONSCIOUSNESS [None]
  - PRODUCT SUBSTITUTION ISSUE [None]
